FAERS Safety Report 17957368 (Version 2)
Quarter: 2021Q1

REPORT INFORMATION
  Report Type: Spontaneous
  Country: US (occurrence: US)
  Receive Date: 20200629
  Receipt Date: 20210329
  Transmission Date: 20210419
  Serious: Yes (Other)
  Sender: FDA-Public Use
  Company Number: US-PFIZER INC-2020249274

PATIENT
  Age: 72 Year
  Sex: Female
  Weight: 70.03 kg

DRUGS (6)
  1. PRIMROSE [Concomitant]
     Dosage: UNK
  2. B50 [Concomitant]
     Indication: NEUROPATHY PERIPHERAL
     Dosage: UNK
  3. ZYRTEC [Concomitant]
     Active Substance: CETIRIZINE HYDROCHLORIDE
     Dosage: UNK
  4. IBRANCE [Suspect]
     Active Substance: PALBOCICLIB
     Indication: NEOPLASM
     Dosage: 125 MG, 1X/DAY(IN THE AM WITH BREAKFAST )
     Dates: start: 2016, end: 20210211
  5. ALFA LIPOIC ACID [Concomitant]
     Indication: NEUROPATHY PERIPHERAL
     Dosage: UNK
  6. LETROZOLE. [Concomitant]
     Active Substance: LETROZOLE
     Dosage: 2.5 MG, 1X/DAY
     Dates: start: 2017

REACTIONS (2)
  - Cataract [Not Recovered/Not Resolved]
  - Scar [Unknown]

NARRATIVE: CASE EVENT DATE: 202012
